FAERS Safety Report 13243792 (Version 1)
Quarter: 2017Q1

REPORT INFORMATION
  Report Type: Spontaneous
  Country: US (occurrence: US)
  Receive Date: 20170216
  Receipt Date: 20170216
  Transmission Date: 20170428
  Serious: Yes (Hospitalization, Disabling, Other)
  Sender: FDA-Public Use
  Company Number: US-IMPAX LABORATORIES, INC-2017-IPXL-00289

PATIENT
  Age: 36 Year
  Sex: Male

DRUGS (8)
  1. ADRENACLICK [Suspect]
     Active Substance: EPINEPHRINE
     Dosage: 10 MG/50 ML OF SOLUTION 0.9% AT 8 ML/HOUR
     Route: 042
  2. ATROPINE. [Concomitant]
     Active Substance: ATROPINE
     Indication: PRODUCT USED FOR UNKNOWN INDICATION
     Dosage: 1 MG PUSH STAT, THREE TIMES
     Route: 042
  3. CEFTRIAXONE. [Concomitant]
     Active Substance: CEFTRIAXONE
     Indication: PRODUCT USED FOR UNKNOWN INDICATION
     Dosage: 2 G, DAILY
     Route: 042
  4. ENOXAPARIN [Concomitant]
     Active Substance: ENOXAPARIN
     Indication: PRODUCT USED FOR UNKNOWN INDICATION
     Dosage: 40 MG DAILY
     Route: 058
  5. DOPAMINE [Suspect]
     Active Substance: DOPAMINE\DOPAMINE HYDROCHLORIDE
     Dosage: UNK; WEAN DOWN
     Route: 042
  6. ADRENACLICK [Suspect]
     Active Substance: EPINEPHRINE
     Indication: CARDIAC ARREST
     Dosage: 1 MG PUSH STAT, THREE TIMES
     Route: 042
  7. ADRENACLICK [Suspect]
     Active Substance: EPINEPHRINE
     Dosage: UNK; WEANED DOWN IN 3 DAYS
     Route: 042
  8. DOPAMINE [Suspect]
     Active Substance: DOPAMINE\DOPAMINE HYDROCHLORIDE
     Indication: CARDIAC ARREST
     Dosage: 400 MG/100 ML OF SOLUTION 0.9% AT 10 ML/HOUR
     Route: 042

REACTIONS (1)
  - Gangrene [Recovered/Resolved with Sequelae]
